FAERS Safety Report 7733948-0 (Version None)
Quarter: 2011Q3

REPORT INFORMATION
  Report Type: 
  Country: None (occurrence: None)
  Receive Date: 20110906
  Receipt Date: 20110906
  Transmission Date: 20111222
  Serious: Yes (Death, Hospitalization)
  Sender: FDA-Public Use
  Company Number: None

PATIENT
  Sex: Female
  Weight: 65.9 kg

DRUGS (10)
  1. CISPLATIN [Suspect]
     Dosage: 130.5 MG
     Dates: end: 20110726
  2. DILANTIN [Concomitant]
  3. COLACE [Concomitant]
  4. MANNITOL [Concomitant]
  5. ATIVAN [Concomitant]
  6. ZOFRAN [Concomitant]
  7. PRILOSEC [Concomitant]
  8. ETOPOSIDE [Suspect]
     Dosage: 522 MG
     Dates: end: 20110728
  9. APREPITANT [Concomitant]
  10. DECADRON [Concomitant]

REACTIONS (9)
  - DISORIENTATION [None]
  - CONDITION AGGRAVATED [None]
  - VOMITING [None]
  - CONSTIPATION [None]
  - CONVULSION [None]
  - BRAIN NEOPLASM [None]
  - APHASIA [None]
  - HYPERTENSION [None]
  - NUCLEAR MAGNETIC RESONANCE IMAGING BRAIN ABNORMAL [None]
